FAERS Safety Report 12485487 (Version 1)
Quarter: 2016Q2

REPORT INFORMATION
  Report Type: Spontaneous
  Country: US (occurrence: US)
  Receive Date: 20160621
  Receipt Date: 20160621
  Transmission Date: 20160815
  Serious: No
  Sender: FDA-Public Use
  Company Number: US-SA-2016SA043466

PATIENT
  Age: 12 Year
  Sex: Female
  Weight: 54.43 kg

DRUGS (18)
  1. DIPHENHYDRAMINE. [Concomitant]
     Active Substance: DIPHENHYDRAMINE
     Indication: PREMEDICATION
     Route: 048
     Dates: start: 20160219
  2. NORMAL SALINE [Concomitant]
     Active Substance: SODIUM CHLORIDE
     Indication: FLUSHING
     Dosage: AS NEEDED
     Route: 042
     Dates: start: 20160219
  3. ACETAMINOPHEN. [Concomitant]
     Active Substance: ACETAMINOPHEN
     Indication: PREMEDICATION
     Dates: start: 20160303
  4. DIPHENHYDRAMINE. [Concomitant]
     Active Substance: DIPHENHYDRAMINE
     Indication: PREMEDICATION
     Route: 048
     Dates: start: 20160303
  5. NORMAL SALINE [Concomitant]
     Active Substance: SODIUM CHLORIDE
     Indication: MEDICATION DILUTION
     Dosage: AS NEEDED
     Route: 042
     Dates: start: 20160303
  6. CEREZYME [Suspect]
     Active Substance: IMIGLUCERASE
     Indication: GAUCHER^S DISEASE
     Dosage: DOSE:66.13 UNIT(S)/KILOGRAM BODYWEIGHT
     Route: 041
  7. CEREZYME [Suspect]
     Active Substance: IMIGLUCERASE
     Indication: GAUCHER^S DISEASE
     Dosage: DOSE:66.13 UNIT(S)/KILOGRAM BODYWEIGHT
     Route: 041
  8. CEREZYME [Suspect]
     Active Substance: IMIGLUCERASE
     Indication: GAUCHER^S DISEASE
     Dosage: DOSE:66.13 UNIT(S)/KILOGRAM BODYWEIGHT
     Route: 041
  9. CEREZYME [Suspect]
     Active Substance: IMIGLUCERASE
     Indication: GAUCHER^S DISEASE
     Dosage: DOSE:66.13 UNIT(S)/KILOGRAM BODYWEIGHT
     Route: 041
  10. LIDOCAINE/PRILOCAINE [Concomitant]
     Indication: PREMEDICATION
     Route: 061
     Dates: start: 20160219
  11. NORMAL SALINE [Concomitant]
     Active Substance: SODIUM CHLORIDE
     Indication: MEDICATION DILUTION
     Dosage: AS NEEDED
     Route: 042
     Dates: start: 20160219
  12. MUPIROCIN. [Concomitant]
     Active Substance: MUPIROCIN
     Route: 061
     Dates: start: 20160219
  13. MUPIROCIN. [Concomitant]
     Active Substance: MUPIROCIN
     Route: 061
     Dates: start: 20151117
  14. SOLU-MEDROL [Concomitant]
     Active Substance: METHYLPREDNISOLONE SODIUM SUCCINATE
     Indication: ANAPHYLACTIC REACTION
     Dates: start: 20160303
  15. CEREZYME [Suspect]
     Active Substance: IMIGLUCERASE
     Indication: GAUCHER^S DISEASE
     Dosage: DOSE:66.13 UNIT(S)/KILOGRAM BODYWEIGHT
     Route: 041
  16. EPIPEN [Concomitant]
     Active Substance: EPINEPHRINE
     Indication: ANAPHYLACTIC REACTION
     Route: 030
     Dates: start: 20160219
  17. CEREZYME [Suspect]
     Active Substance: IMIGLUCERASE
     Indication: GAUCHER^S DISEASE
     Dosage: DOSE:66.13 UNIT(S)/KILOGRAM BODYWEIGHT
     Route: 041
  18. NORMAL SALINE [Concomitant]
     Active Substance: SODIUM CHLORIDE
     Indication: FLUSHING
     Dosage: AS NEEDED
     Route: 042
     Dates: start: 20160303

REACTIONS (3)
  - Headache [Recovered/Resolved]
  - Fatigue [Recovered/Resolved]
  - Hypotension [Recovered/Resolved]
